FAERS Safety Report 4664386-5 (Version None)
Quarter: 2005Q2

REPORT INFORMATION
  Report Type: 
  Country: None (occurrence: None)
  Receive Date: 20050518
  Receipt Date: 20011025
  Transmission Date: 20051028
  Serious: Yes (Hospitalization, Disabling, Other)
  Sender: FDA-Public Use
  Company Number: US-MERCK-01104484

PATIENT
  Age: 48 Year
  Sex: Female
  Weight: 55 kg

DRUGS (17)
  1. VIOXX [Suspect]
     Indication: ARTHRALGIA
     Route: 048
     Dates: start: 19990701, end: 20020101
  2. VIOXX [Suspect]
     Route: 048
  3. VIOXX [Suspect]
     Route: 048
  4. VIOXX [Suspect]
     Route: 048
     Dates: start: 19990901, end: 19990901
  5. VIOXX [Suspect]
     Indication: POLYMYALGIA
     Route: 048
     Dates: start: 19990701, end: 20020101
  6. VIOXX [Suspect]
     Route: 048
  7. VIOXX [Suspect]
     Route: 048
  8. VIOXX [Suspect]
     Route: 048
     Dates: start: 19990901, end: 19990901
  9. ANAPROX [Concomitant]
     Route: 065
     Dates: start: 19990501
  10. FEMHRT [Concomitant]
     Indication: MENOPAUSAL SYMPTOMS
     Route: 065
  11. HERBS (UNSPECIFIED) [Concomitant]
     Route: 065
  12. CELEBREX [Concomitant]
     Route: 065
     Dates: start: 19990701, end: 19990701
  13. TRAZODONE HYDROCHLORIDE [Concomitant]
     Route: 065
  14. TRAZODONE HYDROCHLORIDE [Concomitant]
     Route: 048
     Dates: start: 19990101
  15. TRAZODONE HYDROCHLORIDE [Concomitant]
     Route: 048
     Dates: start: 19990101
  16. PROZAC [Concomitant]
     Route: 065
  17. PROZAC [Concomitant]
     Route: 048
     Dates: start: 19990801

REACTIONS (51)
  - ACOUSTIC STIMULATION TESTS ABNORMAL [None]
  - AMNESIA [None]
  - ARTHRALGIA [None]
  - ASTHENIA [None]
  - BLINDNESS UNILATERAL [None]
  - CARDIOVASCULAR DISORDER [None]
  - CHRONIC FATIGUE SYNDROME [None]
  - CLAVICLE FRACTURE [None]
  - COCCIDIOIDOMYCOSIS [None]
  - CONVULSION [None]
  - DACRYOCYSTITIS INFECTIVE [None]
  - DACRYOSTENOSIS ACQUIRED [None]
  - DEMENTIA [None]
  - DRUG INEFFECTIVE [None]
  - DRY EYE [None]
  - DRY MOUTH [None]
  - ECZEMA ASTEATOTIC [None]
  - EMOTIONAL DISTRESS [None]
  - ENCEPHALITIS [None]
  - ENDOCARDITIS [None]
  - FALL [None]
  - FIBROMYALGIA [None]
  - FRACTURE [None]
  - GASTROOESOPHAGEAL REFLUX DISEASE [None]
  - GRAND MAL CONVULSION [None]
  - HEADACHE [None]
  - HYPOAESTHESIA [None]
  - INCONTINENCE [None]
  - INSOMNIA [None]
  - IRITIS [None]
  - JOINT DISLOCATION [None]
  - JOINT INJURY [None]
  - LACRIMATION INCREASED [None]
  - LETHARGY [None]
  - LIMB INJURY [None]
  - MENINGITIS [None]
  - MITRAL VALVE PROLAPSE [None]
  - MYOCARDITIS [None]
  - NAUSEA [None]
  - NIGHT SWEATS [None]
  - PHOTOSENSITIVITY REACTION [None]
  - PRURITUS [None]
  - PULMONARY CALCIFICATION [None]
  - PYREXIA [None]
  - RASH [None]
  - RENAL FAILURE [None]
  - STOMATITIS [None]
  - UPPER RESPIRATORY TRACT INFECTION [None]
  - VERTIGO [None]
  - VIRAL INFECTION [None]
  - VOMITING [None]
